FAERS Safety Report 9864672 (Version 1)
Quarter: 2014Q1

REPORT INFORMATION
  Report Type: Spontaneous
  Country: US (occurrence: US)
  Receive Date: 20140203
  Receipt Date: 20140203
  Transmission Date: 20141002
  Serious: No
  Sender: FDA-Public Use
  Company Number: US-AMGEN-USASP2014004161

PATIENT
  Age: 61 Year
  Sex: Female

DRUGS (1)
  1. ENBREL [Suspect]
     Indication: GRANULOMA ANNULARE
     Dosage: 50 MG, 2 TIMES/WK (FOR FOUR MONTHS)
     Route: 065
     Dates: end: 201305

REACTIONS (1)
  - Dermatitis contact [Not Recovered/Not Resolved]
